FAERS Safety Report 22171017 (Version 1)
Quarter: 2023Q2

REPORT INFORMATION
  Report Type: Report from Study
  Country: FR (occurrence: FR)
  Receive Date: 20230404
  Receipt Date: 20230404
  Transmission Date: 20230721
  Serious: Yes (Death, Other)
  Sender: FDA-Public Use
  Company Number: FR-PFIZER INC-2021619187

PATIENT
  Age: 56 Year
  Sex: Female

DRUGS (15)
  1. DOXORUBICIN [Suspect]
     Active Substance: DOXORUBICIN
     Indication: Burkitt^s leukaemia
     Dosage: 60 MILLIGRAM/SQ. METER, ONCE A DAY, ON DAY 2, CONSECUTIVE COURSE, COPADM 1
     Route: 065
  2. DOXORUBICIN [Suspect]
     Active Substance: DOXORUBICIN
     Dosage: 60 MILLIGRAM/SQ. METER, ONCE A DAY,  ON DAY 2, MAINTENANCE
     Route: 065
  3. PREDNISONE [Suspect]
     Active Substance: PREDNISONE
     Indication: Burkitt^s leukaemia
     Dosage: 60 MILLIGRAM/SQ. METER, ONCE A DAY,  FROM DAY 1 TO DAY 7, CYTOREDUCTIVE PHASE
  4. PREDNISONE [Suspect]
     Active Substance: PREDNISONE
     Dosage: 60 MILLIGRAM/SQ. METER, ONCE A DAY, FROM DAY 1 TO DAY 7, CONSECUTIVE COURSE, COPADM 1
     Route: 065
  5. CYCLOPHOSPHAMIDE [Suspect]
     Active Substance: CYCLOPHOSPHAMIDE
     Indication: Burkitt^s leukaemia
     Dosage: 500 MG/M2/DAY ON DAY 1 AND DAY 2, MAINTENANCE
     Route: 065
  6. CYCLOPHOSPHAMIDE [Suspect]
     Active Substance: CYCLOPHOSPHAMIDE
     Dosage: 300 MG/M2/DAY ON DAY 1, CYTOREDUCTIVE PHASE
     Route: 065
  7. CYCLOPHOSPHAMIDE [Suspect]
     Active Substance: CYCLOPHOSPHAMIDE
     Dosage: 1000 MG/M2/DAY FROM DAY 2 TO DAY 4, CONSECUTIVE COURSE, COPADM 2
     Route: 065
  8. CYCLOPHOSPHAMIDE [Suspect]
     Active Substance: CYCLOPHOSPHAMIDE
     Dosage: 500 MG/M2/DAY FROM DAY 2 TO DAY 4, CONSECUTIVE COURSE, COPADM 1
  9. CYTARABINE [Suspect]
     Active Substance: CYTARABINE
     Indication: Burkitt^s leukaemia
     Dosage: 100 MILLIGRAM/SQ. METER, ONCE A DAY, ROM DAY 1 TO DAY 5 (24-H INFUSION), CONSOLIDATION PHASE
     Route: 065
  10. METHOTREXATE SODIUM [Suspect]
     Active Substance: METHOTREXATE SODIUM
     Indication: Burkitt^s leukaemia
     Dosage: 3 GRAM PER SQUARE METRE, ONCE A DAY, ON DAY 1, CONSOLIDATION PHASE
     Route: 065
  11. METHOTREXATE SODIUM [Suspect]
     Active Substance: METHOTREXATE SODIUM
     Dosage: 3 GRAM PER SQUARE METRE, ONCE A DAY, ON DAY 1, CONSECUTIVE COURSE, COPADM 1
     Route: 065
  12. VINCRISTINE SULFATE [Suspect]
     Active Substance: VINCRISTINE SULFATE
     Indication: Burkitt^s leukaemia
     Dosage: 2 MILLIGRAM, ONCE A DAY, ON DAY 1, CONSECUTIVE COURSE, COPADM 1
     Route: 065
  13. VINCRISTINE SULFATE [Suspect]
     Active Substance: VINCRISTINE SULFATE
     Dosage: 2 MILLIGRAM, ONCE A DAY, ON DAY 1, MAINTENANCE
     Route: 065
  14. VINCRISTINE SULFATE [Suspect]
     Active Substance: VINCRISTINE SULFATE
     Dosage: 2 MILLIGRAM, ONCE A DAY, ON DAY 1, CYTOREDUCTIVE PHASE
     Route: 065
  15. VINCRISTINE SULFATE [Suspect]
     Active Substance: VINCRISTINE SULFATE
     Dosage: 2 MILLIGRAM, ONCE A DAY,  ON DAY 1 AND DAY 6, CONSECUTIVE COURSE, COPADM 2
     Route: 065

REACTIONS (1)
  - Sepsis [Fatal]
